FAERS Safety Report 8860959 (Version 2)
Quarter: 2013Q1

REPORT INFORMATION
  Report Type: Report from Study
  Country: JP (occurrence: JP)
  Receive Date: 20121025
  Receipt Date: 20130318
  Transmission Date: 20140127
  Serious: Yes (Other)
  Sender: FDA-Public Use
  Company Number: JP-009507513-1210JPN010894

PATIENT
  Age: 61 Year
  Sex: Male
  Weight: 57 kg

DRUGS (10)
  1. REBETOL [Suspect]
     Indication: CHRONIC HEPATITIS C
     Dosage: 200 MG IN THE MORNING AND 400 IN THE EVENING,DAILY DOSE UNKNOWN
     Route: 048
     Dates: start: 20110905
  2. FERON [Suspect]
     Indication: CHRONIC HEPATITIS C
     Dosage: 6 MILLION IU,  6 TIMES A WEEK
     Route: 042
     Dates: start: 20110905, end: 20110918
  3. FERON [Suspect]
     Dosage: 6 MILLION IU,  6 TIMES A WEEK
     Route: 042
     Dates: start: 20110919
  4. URSO [Concomitant]
     Indication: CHRONIC HEPATITIS C
     Dosage: 900 MG, QD,DIVIDED DOSE FREQUENCY UNKNOWN
     Route: 048
     Dates: start: 20110617
  5. TAKEPRON [Concomitant]
     Indication: PROPHYLAXIS AGAINST GASTROINTESTINAL ULCER
     Dosage: 30 MG, QD,DIVIDEDDOSE FREQUENCY UNKNOWN
     Route: 048
  6. ADALAT [Concomitant]
     Indication: HYPERTENSION
     Dosage: 40 MG, QD,DIVIDED DOSE FREQUENCY UNKNOWN
     Route: 048
  7. FLUITRAN [Concomitant]
     Indication: HYPERTENSION
     Dosage: 2 MG, QD,DIVIDED DOSE FREQUENCY UNKNOWN
     Route: 048
  8. ALOSENN (SENNA) [Concomitant]
     Indication: CONSTIPATION
     Dosage: 1 G, QD,DIVIDED DOSE FREQUENCY UNKNOWN
     Route: 048
     Dates: start: 20110912
  9. LACTULOSE [Concomitant]
     Indication: CONSTIPATION
     Dosage: 60 ML, QD,DIVIDED DOSE FREQUENCY UNKNOWN
     Route: 048
     Dates: start: 20110902
  10. ZYLORIC [Concomitant]
     Indication: HYPERURICAEMIA
     Dosage: 100 MG, QD,DIVIDED DOSE FREQUENCY UNKNOWN
     Route: 048
     Dates: start: 20110912

REACTIONS (4)
  - Neutrophil count decreased [Recovered/Resolved]
  - Pyrexia [Recovering/Resolving]
  - Pruritus [Recovering/Resolving]
  - Protein urine [Recovered/Resolved]
